FAERS Safety Report 20332850 (Version 1)
Quarter: 2022Q1

REPORT INFORMATION
  Report Type: Spontaneous
  Country: None (occurrence: US)
  Receive Date: 20220113
  Receipt Date: 20220113
  Transmission Date: 20220423
  Serious: No
  Sender: FDA-Public Use
  Company Number: US-Akron, Inc.-2123912

PATIENT
  Age: 17 Year
  Sex: Male

DRUGS (1)
  1. MYORISAN [Suspect]
     Active Substance: ISOTRETINOIN
     Indication: Acne
     Dates: start: 20201118, end: 20210401

REACTIONS (2)
  - Acne [None]
  - Drug effect less than expected [None]
